FAERS Safety Report 6684453-4 (Version None)
Quarter: 2010Q2

REPORT INFORMATION
  Report Type: 
  Country: None (occurrence: None)
  Receive Date: 20100416
  Receipt Date: 20100414
  Transmission Date: 20101027
  Serious: Yes (Hospitalization, Other)
  Sender: FDA-Public Use
  Company Number: GXKR2008DE10968

PATIENT
  Sex: Male
  Weight: 74 kg

DRUGS (10)
  1. PARACETAMOL (NGX) [Suspect]
     Dosage: 500 MG, QID
     Route: 048
     Dates: start: 20080725, end: 20080805
  2. CIPROFLOXACIN [Suspect]
     Dosage: 250 MG, BID
     Route: 048
     Dates: start: 20080729, end: 20080807
  3. REMERGIL [Suspect]
     Indication: DEPRESSION
     Dosage: 30 MG DAILY EXCEPTING 23 JUL 2008: 1X1 TABLET AT 15 MG
     Route: 048
     Dates: start: 20080723, end: 20080807
  4. ENALAPRIL MALEATE [Concomitant]
     Dosage: SINGLE DOSE DIFFERENT
     Route: 047
     Dates: start: 20080723
  5. FLUOXETINE [Concomitant]
     Indication: DEPRESSION
     Dosage: 20 MG, QD
     Route: 048
     Dates: start: 20080723, end: 20080729
  6. IBUHEXAL                           /00109201/ [Concomitant]
     Indication: BACK PAIN
     Dosage: UNK
     Dates: start: 20080726, end: 20080815
  7. TAMSULOSIN HCL [Concomitant]
     Indication: BENIGN PROSTATIC HYPERPLASIA
     Dosage: 0.4 MG, QD
     Route: 048
     Dates: start: 20080730
  8. PANTOPRAZOLE SODIUM [Concomitant]
     Dosage: 1 DF, QD
     Dates: start: 20080723
  9. REQUIP [Concomitant]
     Indication: PARKINSON'S DISEASE
     Dosage: SINGLE DOSE DIFFERENT
     Route: 048
     Dates: start: 20080725
  10. TAVOR [Concomitant]
     Dosage: UNK
     Route: 048
     Dates: start: 20080722

REACTIONS (1)
  - HEPATITIS ACUTE [None]
